FAERS Safety Report 26219318 (Version 1)
Quarter: 2025Q4

REPORT INFORMATION
  Report Type: Spontaneous
  Country: GB (occurrence: GB)
  Receive Date: 20251231
  Receipt Date: 20251231
  Transmission Date: 20260118
  Serious: Yes (Other)
  Sender: B. BRAUN MEDICAL INC.
  Company Number: None

PATIENT
  Age: 19 Year
  Sex: Female
  Weight: 35 kg

DRUGS (7)
  1. METRONIDAZOLE [Suspect]
     Active Substance: METRONIDAZOLE
  2. NITROFURANTOIN [Concomitant]
     Active Substance: NITROFURANTOIN
     Dosage: TAKE ONE CAPSULE TWICE DAILY FOR 3 DAYS, TO TREAT INFECTION
     Dates: start: 20251016, end: 20251019
  3. DOXYCYCLINE [Concomitant]
     Active Substance: DOXYCYCLINE
     Dosage: 100MG TWICE DAILY FOR A WEEK
     Dates: start: 20251023, end: 20251030
  4. KETOCONAZOLE [Concomitant]
     Active Substance: KETOCONAZOLE
     Dosage: APPLY TWICE DAILY TILL SKIN LESIONS HEALED AND ...
     Dates: start: 20251113, end: 20251123
  5. LACTULOSE [Concomitant]
     Active Substance: LACTULOSE
     Dosage: 15ML TWICE DAILY
     Dates: start: 20251121, end: 20251201
  6. SENNA [Concomitant]
     Active Substance: SENNOSIDES
     Dosage: TAKE 1-2 TABLETS AT NIGHT
     Dates: start: 20251121, end: 20251128
  7. FEXOFENADINE [Concomitant]
     Active Substance: FEXOFENADINE HYDROCHLORIDE
     Dosage: TAKE ONE DAILY
     Dates: start: 20250627, end: 20251028

REACTIONS (3)
  - Feeling hot [Recovered/Resolved]
  - Loss of consciousness [Recovered/Resolved]
  - Dizziness [Recovered/Resolved]
